FAERS Safety Report 17726263 (Version 1)
Quarter: 2020Q2

REPORT INFORMATION
  Report Type: Spontaneous
  Country: US (occurrence: US)
  Receive Date: 20200429
  Receipt Date: 20200429
  Transmission Date: 20200714
  Serious: No
  Sender: FDA-Public Use
  Company Number: US-TEVA-2020-US-1229450

PATIENT
  Sex: Female

DRUGS (2)
  1. ACTAVIS TEMAZEPAM [Suspect]
     Active Substance: TEMAZEPAM
     Indication: ANXIETY
  2. ACTAVIS TEMAZEPAM [Suspect]
     Active Substance: TEMAZEPAM
     Indication: INSOMNIA
     Route: 065
     Dates: start: 201911

REACTIONS (2)
  - Drug ineffective [Unknown]
  - Product substitution issue [Unknown]

NARRATIVE: CASE EVENT DATE: 201911
